FAERS Safety Report 14054182 (Version 1)
Quarter: 2017Q4

REPORT INFORMATION
  Report Type: Spontaneous
  Country: US (occurrence: None)
  Receive Date: 20171006
  Receipt Date: 20171006
  Transmission Date: 20180321
  Serious: Yes (Hospitalization)
  Sender: FDA-Public Use
  Company Number: None

PATIENT
  Age: 56 Year
  Sex: Male

DRUGS (2)
  1. ZELBORAF [Suspect]
     Active Substance: VEMURAFENIB
     Indication: MALIGNANT MELANOMA
     Route: 048
     Dates: start: 20170328, end: 20170823
  2. COTELLIC [Suspect]
     Active Substance: COBIMETINIB
     Indication: MALIGNANT MELANOMA
     Dosage: QD 1-21 OF 28
     Route: 048
     Dates: start: 20170328, end: 20170823

REACTIONS (3)
  - White blood cell count decreased [None]
  - Gastrointestinal bacterial infection [None]
  - Gait inability [None]

NARRATIVE: CASE EVENT DATE: 201708
